FAERS Safety Report 18089827 (Version 1)
Quarter: 2020Q3

REPORT INFORMATION
  Report Type: Spontaneous
  Country: US (occurrence: US)
  Receive Date: 20200729
  Receipt Date: 20200729
  Transmission Date: 20201103
  Serious: No
  Sender: FDA-Public Use
  Company Number: US-GILEAD-2020-0486690

PATIENT

DRUGS (2)
  1. BIKTARVY [Suspect]
     Active Substance: BICTEGRAVIR SODIUM\EMTRICITABINE\TENOFOVIR ALAFENAMIDE FUMARATE
     Indication: PRODUCT USED FOR UNKNOWN INDICATION
     Dosage: UNK
     Route: 065
  2. NAUZENE (TRISODIUM CITRATE DIHYDRATE) [Suspect]
     Active Substance: TRISODIUM CITRATE DIHYDRATE
     Indication: NAUSEA
     Dosage: 230 MG
     Route: 065

REACTIONS (1)
  - Nausea [Unknown]
